FAERS Safety Report 17034587 (Version 1)
Quarter: 2019Q4

REPORT INFORMATION
  Report Type: Spontaneous
  Country: US (occurrence: US)
  Receive Date: 20191115
  Receipt Date: 20191115
  Transmission Date: 20200122
  Serious: No
  Sender: FDA-Public Use
  Company Number: US-009507513-1910USA011935

PATIENT
  Age: 17 Year
  Sex: Female

DRUGS (2)
  1. NEXPLANON [Suspect]
     Active Substance: ETONOGESTREL
     Dosage: 1 IMPLANT
     Route: 059
     Dates: end: 201908
  2. NEXPLANON [Suspect]
     Active Substance: ETONOGESTREL
     Dosage: 1 NEW IMPLANT; FREQUENCY REPORTED AS 3 YEARS
     Route: 059
     Dates: start: 201908

REACTIONS (5)
  - Complication of device removal [Recovered/Resolved]
  - Implant site erythema [Unknown]
  - Implant site pruritus [Unknown]
  - Product administered to patient of inappropriate age [Unknown]
  - Implant site swelling [Unknown]

NARRATIVE: CASE EVENT DATE: 201908
